FAERS Safety Report 8533778-6 (Version None)
Quarter: 2012Q3

REPORT INFORMATION
  Report Type: 
  Country: None (occurrence: None)
  Receive Date: 20120724
  Receipt Date: 20120719
  Transmission Date: 20120928
  Serious: Yes (Hospitalization, Other)
  Sender: FDA-Public Use
  Company Number: JP-ROCHE-1024185

PATIENT
  Sex: Male

DRUGS (10)
  1. RANIBIZUMAB [Suspect]
     Route: 050
     Dates: start: 20090910
  2. RANIBIZUMAB [Suspect]
     Route: 050
     Dates: start: 20100112
  3. RANIBIZUMAB [Suspect]
     Route: 050
     Dates: start: 20090807
  4. RANIBIZUMAB [Suspect]
     Indication: AGE-RELATED MACULAR DEGENERATION
     Route: 050
     Dates: start: 20090630
  5. LEVOFLOXACIN [Concomitant]
     Dates: start: 20090601, end: 20100701
  6. RANIBIZUMAB [Suspect]
     Route: 050
     Dates: start: 20100608
  7. RANIBIZUMAB [Suspect]
     Route: 050
     Dates: start: 20091208
  8. RANIBIZUMAB [Suspect]
     Route: 050
     Dates: start: 20100713
  9. RANIBIZUMAB [Suspect]
     Route: 050
     Dates: start: 20100216
  10. CEFMENOXIME HYDROCHLORIDE [Concomitant]

REACTIONS (3)
  - VITREOUS DETACHMENT [None]
  - VITREOUS HAEMORRHAGE [None]
  - RETINAL HAEMORRHAGE [None]
